FAERS Safety Report 17064490 (Version 2)
Quarter: 2019Q4

REPORT INFORMATION
  Report Type: Spontaneous
  Country: BY (occurrence: BY)
  Receive Date: 20191122
  Receipt Date: 20191126
  Transmission Date: 20200122
  Serious: Yes (Death, Other)
  Sender: FDA-Public Use
  Company Number: BY-JNJFOC-20191121547

PATIENT
  Age: 49 Year
  Sex: Male
  Weight: 50 kg

DRUGS (29)
  1. IMIPENEM CILASTATIN                /00820501/ [Suspect]
     Active Substance: CILASTATIN SODIUM\IMIPENEM
     Indication: TUBERCULOSIS
     Route: 065
     Dates: start: 20180607, end: 20190101
  2. PENTOXIFYLLIN [Concomitant]
     Active Substance: PENTOXIFYLLINE
     Indication: PRODUCT USED FOR UNKNOWN INDICATION
     Dates: start: 20190122, end: 20190321
  3. ACC                                /00082801/ [Concomitant]
     Active Substance: ACETYLCYSTEINE
     Indication: PRODUCT USED FOR UNKNOWN INDICATION
     Dates: start: 20181012, end: 20181113
  4. EUPHYLLIN                          /00003701/ [Concomitant]
     Active Substance: AMINOPHYLLINE
     Indication: PRODUCT USED FOR UNKNOWN INDICATION
     Dates: start: 20190418, end: 20190609
  5. PIRACEZIN [Concomitant]
     Indication: PRODUCT USED FOR UNKNOWN INDICATION
     Dosage: 400/25 MILLIGRAM
     Dates: start: 20180831, end: 20181123
  6. PYRALGIN                           /03155201/ [Concomitant]
     Active Substance: METAMIZOLE\NIMESULIDE
     Indication: PRODUCT USED FOR UNKNOWN INDICATION
     Dates: start: 20190213, end: 20190321
  7. CLOFAZIMINE [Suspect]
     Active Substance: CLOFAZIMINE
     Dates: start: 20180807, end: 20190226
  8. PYRIDOXINE [Concomitant]
     Active Substance: PYRIDOXINE
     Indication: PRODUCT USED FOR UNKNOWN INDICATION
     Dates: start: 20180611, end: 20190609
  9. KETILEPT [Concomitant]
     Active Substance: QUETIAPINE FUMARATE
     Indication: PRODUCT USED FOR UNKNOWN INDICATION
     Dates: start: 20180922, end: 20190307
  10. KETILEPT [Concomitant]
     Active Substance: QUETIAPINE FUMARATE
     Dates: start: 20190307, end: 20190523
  11. SIRTURO [Suspect]
     Active Substance: BEDAQUILINE FUMARATE
     Route: 048
     Dates: start: 20180621, end: 20190226
  12. DELAMANID [Suspect]
     Active Substance: DELAMANID
     Indication: TUBERCULOSIS
     Route: 048
     Dates: start: 20180607, end: 20190226
  13. AMOXICILLIN W/CLAVULANIC ACID [Suspect]
     Active Substance: AMOXICILLIN\CLAVULANIC ACID
     Indication: TUBERCULOSIS
     Route: 065
     Dates: start: 20180607, end: 20180807
  14. MAGVIT                             /00869101/ [Concomitant]
     Dosage: 5MG/50MG
     Dates: start: 20190418, end: 20190607
  15. PANCREATIN [Concomitant]
     Active Substance: PANCRELIPASE
     Indication: PRODUCT USED FOR UNKNOWN INDICATION
     Dates: start: 20190204, end: 20190607
  16. ACETYLSALICYLIC ACID [Concomitant]
     Active Substance: ASPIRIN
     Indication: PRODUCT USED FOR UNKNOWN INDICATION
     Dates: start: 20190418, end: 20190609
  17. MAGVIT                             /00869101/ [Concomitant]
     Indication: PRODUCT USED FOR UNKNOWN INDICATION
     Dosage: 5MG/50MG
     Dates: start: 20180831, end: 20180930
  18. KETILEPT [Concomitant]
     Active Substance: QUETIAPINE FUMARATE
     Dates: start: 20190525, end: 20190609
  19. HEPTAL [Concomitant]
     Indication: PRODUCT USED FOR UNKNOWN INDICATION
     Dates: start: 20181012, end: 20181126
  20. AMOXICILLIN W/CLAVULANIC ACID [Suspect]
     Active Substance: AMOXICILLIN\CLAVULANIC ACID
     Route: 065
     Dates: start: 20190101
  21. ZOPICLON [Concomitant]
     Active Substance: ZOPICLONE
     Indication: PRODUCT USED FOR UNKNOWN INDICATION
     Dates: start: 20180607, end: 20190321
  22. AMBROXOL [Concomitant]
     Active Substance: AMBROXOL
     Indication: PRODUCT USED FOR UNKNOWN INDICATION
     Dates: start: 20180912, end: 20180930
  23. SIRTURO [Suspect]
     Active Substance: BEDAQUILINE FUMARATE
     Indication: TUBERCULOSIS
     Route: 048
     Dates: start: 20180607
  24. LINEZOLID. [Suspect]
     Active Substance: LINEZOLID
     Indication: TUBERCULOSIS
     Route: 048
     Dates: start: 20180607, end: 20190226
  25. CLOFAZIMINE [Suspect]
     Active Substance: CLOFAZIMINE
     Indication: TUBERCULOSIS
     Dates: start: 20180607, end: 20180621
  26. KETOROLAC [Concomitant]
     Active Substance: KETOROLAC TROMETHAMINE
     Indication: PRODUCT USED FOR UNKNOWN INDICATION
     Route: 030
     Dates: start: 20181128, end: 20190609
  27. ATORVASTATIN [Concomitant]
     Active Substance: ATORVASTATIN
     Indication: PRODUCT USED FOR UNKNOWN INDICATION
     Dates: start: 20190418, end: 20190609
  28. CITRAMON                           /00141001/ [Concomitant]
     Indication: PRODUCT USED FOR UNKNOWN INDICATION
     Dates: start: 20180607, end: 20180610
  29. MAGVIT                             /00869101/ [Concomitant]
     Dosage: 5MG/50MG
     Dates: start: 20181224, end: 20190218

REACTIONS (7)
  - Death [Fatal]
  - Gamma-glutamyltransferase increased [Not Recovered/Not Resolved]
  - Hypomagnesaemia [Recovered/Resolved]
  - Hyperbilirubinaemia [Not Recovered/Not Resolved]
  - Intentional product use issue [Unknown]
  - Hepatic enzyme increased [Not Recovered/Not Resolved]
  - Off label use [Unknown]

NARRATIVE: CASE EVENT DATE: 20180710
